FAERS Safety Report 5633241-6 (Version None)
Quarter: 2008Q1

REPORT INFORMATION
  Report Type: 
  Country: None (occurrence: None)
  Receive Date: 20080221
  Receipt Date: 20080221
  Transmission Date: 20080703
  Serious: Yes (Hospitalization)
  Sender: FDA-Public Use
  Company Number: A0710898A

PATIENT
  Age: 59 Year
  Sex: Female

DRUGS (8)
  1. ALLI [Suspect]
     Dates: start: 20080204, end: 20080207
  2. PHENERGAN HCL [Concomitant]
  3. VITAMIN CAP [Concomitant]
  4. SYNTHROID [Concomitant]
  5. SINGULAIR [Concomitant]
  6. TRAZODONE HCL [Concomitant]
  7. PROTONIX [Concomitant]
  8. MORPHINE [Concomitant]

REACTIONS (4)
  - ANOREXIA [None]
  - DEHYDRATION [None]
  - MALAISE [None]
  - VOMITING [None]
